FAERS Safety Report 5044318-0 (Version None)
Quarter: 2006Q2

REPORT INFORMATION
  Report Type: 
  Country: None (occurrence: None)
  Receive Date: 20060629
  Receipt Date: 20060615
  Transmission Date: 20061013
  Serious: Yes (Hospitalization)
  Sender: FDA-Public Use
  Company Number: 2006065865

PATIENT
  Age: 53 Year
  Sex: Male

DRUGS (6)
  1. SUTENT [Suspect]
     Indication: METASTATIC RENAL CELL CARCINOMA
     Dosage: 50 MG (50 MG, 1 IN 1 D), ORAL
     Route: 048
     Dates: start: 20060320
  2. MEGESTEROL ACETATE                 (MEGESTEROL ACETATE) [Concomitant]
  3. PREDNISOONE               (PREDNISONE) [Concomitant]
  4. IRBESARTAN [Concomitant]
  5. AMLODIPINE [Concomitant]
  6. OMEPRAZOLE [Concomitant]

REACTIONS (9)
  - DYSPNOEA [None]
  - LIVER DISORDER [None]
  - METASTASES TO CENTRAL NERVOUS SYSTEM [None]
  - METASTASES TO LUNG [None]
  - METASTASES TO LYMPH NODES [None]
  - METASTASES TO PERITONEUM [None]
  - PERITONEAL EFFUSION [None]
  - RENAL CELL CARCINOMA RECURRENT [None]
  - SMALL INTESTINAL OBSTRUCTION [None]
